FAERS Safety Report 5939408-1 (Version None)
Quarter: 2008Q4

REPORT INFORMATION
  Report Type: 
  Country: None (occurrence: None)
  Receive Date: 20081103
  Receipt Date: 20081022
  Transmission Date: 20090506
  Serious: Yes (Other)
  Sender: FDA-Public Use
  Company Number: FR-PFIZER INC-2008090758

PATIENT
  Age: 70 Year
  Sex: Male

DRUGS (2)
  1. HYDROXYZINE HYDROCHLORIDE [Suspect]
     Indication: ECZEMA
     Route: 048
     Dates: start: 20020101
  2. DIFLUCORTOLONE VALERATE [Concomitant]
     Route: 062

REACTIONS (3)
  - LEUKOPENIA [None]
  - NEUTROPENIA [None]
  - SIDEROBLASTIC ANAEMIA [None]
